FAERS Safety Report 9587475 (Version 1)
Quarter: 2013Q4

REPORT INFORMATION
  Report Type: Spontaneous
  Country: US (occurrence: US)
  Receive Date: 20131003
  Receipt Date: 20131003
  Transmission Date: 20140711
  Serious: No
  Sender: FDA-Public Use
  Company Number: US-BAYER-2013-119317

PATIENT
  Age: 83 Year
  Sex: Female

DRUGS (1)
  1. ALEVE CAPLET [Suspect]
     Indication: ARTHRITIS
     Dosage: 1 DF, PRN
     Route: 048
     Dates: start: 20130917, end: 20130927

REACTIONS (2)
  - Pain in extremity [Recovered/Resolved]
  - Oedema peripheral [Recovered/Resolved with Sequelae]
